FAERS Safety Report 18340934 (Version 2)
Quarter: 2020Q4

REPORT INFORMATION
  Report Type: Spontaneous
  Country: US (occurrence: US)
  Receive Date: 20201003
  Receipt Date: 20201020
  Transmission Date: 20210113
  Serious: Yes (Other)
  Sender: FDA-Public Use
  Company Number: US-DRREDDYS-USA/USA/20/0127629

PATIENT
  Age: 44 Year
  Sex: Female

DRUGS (3)
  1. DOXORUBICIN HYDROCHLORIDE LIPOSOME INJECTION 20 MG/10 ML (2 MG/ML) AND [Suspect]
     Active Substance: DOXORUBICIN HYDROCHLORIDE
     Indication: ANGIOSARCOMA METASTATIC
     Dosage: AIM 75/10,000 REGIMEN; ON DAY 1-3
  2. MESNA. [Concomitant]
     Active Substance: MESNA
     Indication: PRODUCT USED FOR UNKNOWN INDICATION
  3. IFOSFAMIDE. [Suspect]
     Active Substance: IFOSFAMIDE
     Indication: ANGIOSARCOMA METASTATIC
     Dosage: AIM 75/10,000 REGIMEN ON DAY 1-5

REACTIONS (2)
  - Febrile neutropenia [Unknown]
  - Cardiopulmonary failure [Unknown]
